FAERS Safety Report 20209438 (Version 1)
Quarter: 2021Q4

REPORT INFORMATION
  Report Type: Spontaneous
  Country: DK (occurrence: DK)
  Receive Date: 20211221
  Receipt Date: 20211221
  Transmission Date: 20220303
  Serious: Yes (Death, Hospitalization)
  Sender: FDA-Public Use
  Company Number: None

PATIENT
  Age: 74 Year
  Sex: Male
  Weight: 74 kg

DRUGS (3)
  1. XARELTO [Suspect]
     Active Substance: RIVAROXABAN
     Indication: Atrial fibrillation
     Dosage: 20 MG, QD
     Route: 048
     Dates: start: 2014, end: 20210916
  2. BICALUTAMIDE [Concomitant]
     Active Substance: BICALUTAMIDE
     Indication: Prostate cancer
     Dates: start: 20200603
  3. BISOPROLOL STADA [Concomitant]
     Indication: Cardiac disorder
     Dates: start: 20170223

REACTIONS (4)
  - Cerebral haemorrhage [Fatal]
  - Hemiparesis [Fatal]
  - Loss of consciousness [Fatal]
  - Eye movement disorder [Fatal]

NARRATIVE: CASE EVENT DATE: 20210915
